FAERS Safety Report 17556829 (Version 1)
Quarter: 2020Q1

REPORT INFORMATION
  Report Type: Spontaneous
  Country: FR (occurrence: FR)
  Receive Date: 20200318
  Receipt Date: 20200318
  Transmission Date: 20200409
  Serious: Yes (Other)
  Sender: FDA-Public Use
  Company Number: FR-TEVA-2020-FR-1202343

PATIENT
  Age: 45 Year
  Sex: Male

DRUGS (1)
  1. IBUPROFENE [Suspect]
     Active Substance: IBUPROFEN
     Indication: SELF-MEDICATION
     Route: 048
     Dates: start: 20200221, end: 20200221

REACTIONS (3)
  - Mastoiditis [Unknown]
  - Infection [Unknown]
  - Otitis media acute [Unknown]

NARRATIVE: CASE EVENT DATE: 20200224
